FAERS Safety Report 25499181 (Version 1)
Quarter: 2025Q3

REPORT INFORMATION
  Report Type: Spontaneous
  Country: EU (occurrence: EU)
  Receive Date: 20250701
  Receipt Date: 20250701
  Transmission Date: 20251021
  Serious: Yes (Other)
  Sender: INCYTE
  Company Number: EU-002147023-NVSC2025HU103454

PATIENT
  Age: 44 Year

DRUGS (5)
  1. RUXOLITINIB [Suspect]
     Active Substance: RUXOLITINIB
     Indication: Myeloproliferative neoplasm
     Dosage: 5 MG, BID
     Route: 065
  2. RUXOLITINIB [Suspect]
     Active Substance: RUXOLITINIB
     Indication: Polycythaemia vera
  3. ASPIRIN [Concomitant]
     Active Substance: ASPIRIN
     Indication: Thrombosis
     Route: 065
  4. HEPARIN SODIUM [Concomitant]
     Active Substance: HEPARIN SODIUM
     Indication: Thrombosis
     Route: 065
  5. APIXABAN [Concomitant]
     Active Substance: APIXABAN
     Indication: Thrombosis
     Dosage: 5 MG, BID
     Route: 065

REACTIONS (13)
  - Fibrosis [Unknown]
  - Hepatic steatosis [Unknown]
  - Anaemia [Recovering/Resolving]
  - Thrombocytosis [Recovering/Resolving]
  - Platelet disorder [Not Recovered/Not Resolved]
  - Platelet count abnormal [Recovering/Resolving]
  - White blood cell count abnormal [Recovering/Resolving]
  - Varices oesophageal [Unknown]
  - Haemoglobin abnormal [Not Recovered/Not Resolved]
  - Hiatus hernia [Unknown]
  - Iron deficiency [Recovering/Resolving]
  - Hepatic vascular disorder [Unknown]
  - Splenic vein thrombosis [Unknown]
